FAERS Safety Report 12451329 (Version 3)
Quarter: 2016Q2

REPORT INFORMATION
  Report Type: Spontaneous
  Country: US (occurrence: US)
  Receive Date: 20160609
  Receipt Date: 20160609
  Transmission Date: 20160815
  Serious: Yes (Hospitalization)
  Sender: FDA-Public Use
  Company Number: US-SA-2016SA105298

PATIENT
  Sex: Female

DRUGS (1)
  1. AUBAGIO [Suspect]
     Active Substance: TERIFLUNOMIDE
     Indication: MULTIPLE SCLEROSIS
     Route: 065

REACTIONS (8)
  - Pneumonia [Unknown]
  - Influenza like illness [Unknown]
  - Fatigue [Unknown]
  - Haematemesis [Unknown]
  - Myalgia [Unknown]
  - Sweating fever [Unknown]
  - Pulmonary oedema [Unknown]
  - Asthenia [Unknown]
